FAERS Safety Report 15366745 (Version 1)
Quarter: 2018Q3

REPORT INFORMATION
  Report Type: Spontaneous
  Country: US (occurrence: US)
  Receive Date: 20180901
  Receipt Date: 20180901
  Transmission Date: 20181010
  Serious: Yes (Disabling, Other)
  Sender: FDA-Public Use
  Company Number: None

PATIENT
  Age: 60 Year
  Sex: Female
  Weight: 70.65 kg

DRUGS (2)
  1. LOSARTAN. [Concomitant]
     Active Substance: LOSARTAN
  2. VALSARTAN 160MG TAB SOL [Suspect]
     Active Substance: VALSARTAN
     Indication: HYPERTENSION
     Dosage: ?          QUANTITY:90 TABLETS
     Route: 048
     Dates: start: 20170824, end: 20180717

REACTIONS (22)
  - Hernia [None]
  - Anorectal discomfort [None]
  - Nocturia [None]
  - Cerebral disorder [None]
  - Renal cyst [None]
  - Dry eye [None]
  - Musculoskeletal chest pain [None]
  - Renal disorder [None]
  - Bladder cyst [None]
  - Abdominal discomfort [None]
  - Ocular vascular disorder [None]
  - Bone pain [None]
  - Angina pectoris [None]
  - Diverticulum [None]
  - Vulvovaginal burning sensation [None]
  - Urethral disorder [None]
  - Eye pain [None]
  - Pollakiuria [None]
  - Uterine cyst [None]
  - Throat irritation [None]
  - Dyspepsia [None]
  - Burning sensation [None]

NARRATIVE: CASE EVENT DATE: 20180608
